FAERS Safety Report 9846209 (Version 1)
Quarter: 2013Q4

REPORT INFORMATION
  Report Type: Spontaneous
  Country: US (occurrence: None)
  Receive Date: 20131223
  Receipt Date: 20131223
  Transmission Date: 20140711
  Serious: No
  Sender: FDA-Public Use
  Company Number: CABO-13003227

PATIENT
  Age: 61 Year
  Sex: Female

DRUGS (7)
  1. COMETRIQ [Suspect]
     Indication: THYROID CANCER
     Route: 048
     Dates: start: 20130711
  2. METFORMIN(METFORMIN) [Concomitant]
  3. JANUVIA(SITAGLIPTIN PHOSPHATE) [Concomitant]
  4. GLIMEPIRIDE(GLIMEPIRIDE0 [Concomitant]
  5. RAMIPIRIL(RAMIPRIL) [Concomitant]
  6. CLONIDINE(CLONIDINE) [Concomitant]
  7. LEVOTHYROXINE(LEVOTHYROXINE) [Concomitant]

REACTIONS (3)
  - Hypersensitivity [None]
  - Eye swelling [None]
  - Rash [None]
